FAERS Safety Report 6992135-4 (Version None)
Quarter: 2010Q3

REPORT INFORMATION
  Report Type: 
  Country: None (occurrence: None)
  Receive Date: 20100917
  Receipt Date: 20100910
  Transmission Date: 20110219
  Serious: No
  Sender: FDA-Public Use
  Company Number: US-B.I. PHARMACEUTICALS,INC./RIDGEFIELD-2010-BP-10454BP

PATIENT
  Age: 39 Year
  Sex: Female

DRUGS (2)
  1. MICARDIS [Suspect]
     Indication: HYPERTENSION
     Dosage: 40 MG
     Route: 048
     Dates: start: 20100601
  2. BIRTH CONTROL [Concomitant]
     Indication: ORAL CONTRACEPTION
     Route: 048

REACTIONS (2)
  - MENSTRUATION DELAYED [None]
  - METRORRHAGIA [None]
